FAERS Safety Report 16845790 (Version 3)
Quarter: 2019Q4

REPORT INFORMATION
  Report Type: Spontaneous
  Country: US (occurrence: US)
  Receive Date: 20190924
  Receipt Date: 20191007
  Transmission Date: 20200122
  Serious: Yes (Other)
  Sender: FDA-Public Use
  Company Number: US-CELGENEUS-USA-20190906781

PATIENT
  Sex: Male

DRUGS (5)
  1. OTEZLA [Suspect]
     Active Substance: APREMILAST
     Indication: PSORIASIS
     Dosage: 60 MILLIGRAM
     Route: 048
     Dates: start: 20190812, end: 20190829
  2. KENALOG [Concomitant]
     Active Substance: TRIAMCINOLONE ACETONIDE
     Indication: DERMATITIS
     Dosage: 40 MILLIGRAM
     Route: 030
     Dates: start: 20190711, end: 20190711
  3. CLOBETASOL [Concomitant]
     Active Substance: CLOBETASOL
     Indication: PSORIASIS
     Route: 061
     Dates: start: 20190628
  4. MOMETASONE [Concomitant]
     Active Substance: MOMETASONE
     Indication: PSORIASIS
     Dosage: .1 PERCENT
     Route: 061
     Dates: start: 20190805
  5. HYLATOPIC PLUS [Concomitant]
     Indication: PSORIASIS
     Route: 061
     Dates: start: 20190711

REACTIONS (1)
  - Hypersensitivity [Recovered/Resolved]
